FAERS Safety Report 25677621 (Version 2)
Quarter: 2025Q3

REPORT INFORMATION
  Report Type: Report from Study
  Country: US (occurrence: US)
  Receive Date: 20250813
  Receipt Date: 20250818
  Transmission Date: 20251021
  Serious: Yes (Other)
  Sender: BRISTOL-MYERS SQUIBB COMPANY
  Company Number: US-BRISTOL-MYERS SQUIBB COMPANY-2025-112373

PATIENT
  Age: 80 Year
  Sex: Female

DRUGS (2)
  1. ELIQUIS [Suspect]
     Active Substance: APIXABAN
     Indication: Atrial fibrillation
     Dates: start: 2023
  2. ELIQUIS [Suspect]
     Active Substance: APIXABAN

REACTIONS (3)
  - Cardiac failure congestive [Unknown]
  - Increased tendency to bruise [Unknown]
  - Weight fluctuation [Unknown]
